FAERS Safety Report 12484053 (Version 1)
Quarter: 2016Q2

REPORT INFORMATION
  Report Type: Spontaneous
  Country: ES (occurrence: ES)
  Receive Date: 20160621
  Receipt Date: 20160621
  Transmission Date: 20160815
  Serious: Yes (Other)
  Sender: FDA-Public Use
  Company Number: ES-009507513-1606ESP008054

PATIENT
  Age: 63 Year
  Sex: Male

DRUGS (2)
  1. AMBISOME [Suspect]
     Active Substance: AMPHOTERICIN B
     Indication: SYSTEMIC CANDIDA
     Dosage: 151.5 MG, UNK (228 MG, 1 DAY: 75 MG, 1 DAY)
     Route: 042
     Dates: start: 20160419, end: 20160420
  2. CANCIDAS [Suspect]
     Active Substance: CASPOFUNGIN ACETATE
     Indication: SYSTEMIC CANDIDA
     Dosage: 60 MG, UNK (70 MG, 1 DAY; 50 MG, 1 DAY)
     Route: 042
     Dates: start: 20160416, end: 20160419

REACTIONS (2)
  - Purpura [Recovered/Resolved]
  - Urticaria [Recovered/Resolved]

NARRATIVE: CASE EVENT DATE: 20160419
